FAERS Safety Report 7953217-3 (Version None)
Quarter: 2011Q4

REPORT INFORMATION
  Report Type: 
  Country: None (occurrence: None)
  Receive Date: 20111201
  Receipt Date: 20111124
  Transmission Date: 20120403
  Serious: Yes (Hospitalization)
  Sender: FDA-Public Use
  Company Number: CA-GILEAD-2011-0044705

PATIENT
  Sex: Male

DRUGS (17)
  1. AMBRISENTAN [Suspect]
     Dosage: 10 UNK, UNK
     Route: 048
  2. INDAPAMIDE [Concomitant]
  3. MULTIVITAMINS, COMBINATIONS [Concomitant]
  4. OMEGA 3                            /01334101/ [Concomitant]
  5. MAGNESIUM SULFATE [Concomitant]
  6. ALLOPURINOL [Concomitant]
  7. ATORVASTATIN [Concomitant]
  8. CALCIUM [Concomitant]
  9. DOXEPIN [Concomitant]
  10. FUROSEMIDE [Concomitant]
  11. LOVAZA [Concomitant]
  12. PANTOLOC                           /01263202/ [Concomitant]
  13. MULTIVITAMINS, COMBINATIONS [Concomitant]
  14. AMBRISENTAN [Suspect]
     Indication: PULMONARY ARTERIAL HYPERTENSION
     Dosage: 2.5MG PER DAY
     Route: 048
     Dates: start: 20110909
  15. ASPIRIN [Concomitant]
  16. EZETIMIBE [Concomitant]
  17. PANTOLOC                           /01263202/ [Concomitant]

REACTIONS (3)
  - LIVER FUNCTION TEST ABNORMAL [None]
  - FATIGUE [None]
  - LOSS OF CONSCIOUSNESS [None]
